FAERS Safety Report 15376171 (Version 2)
Quarter: 2020Q3

REPORT INFORMATION
  Report Type: Spontaneous
  Country: US (occurrence: US)
  Receive Date: 20180912
  Receipt Date: 20200707
  Transmission Date: 20201102
  Serious: Yes (Other)
  Sender: FDA-Public Use
  Company Number: US-AMGEN-USASP2018123878

PATIENT
  Age: 42 Year
  Sex: Male

DRUGS (2)
  1. ENBREL [Suspect]
     Active Substance: ETANERCEPT
     Indication: PSORIATIC ARTHROPATHY
     Dosage: 50 MILLIGRAM, QWK
     Route: 065
     Dates: start: 201708
  2. ENBREL [Suspect]
     Active Substance: ETANERCEPT
     Dosage: 50 MILLIGRAM, QWK
     Route: 065

REACTIONS (9)
  - Wrong technique in product usage process [Unknown]
  - Mental impairment [Unknown]
  - Limb injury [Unknown]
  - Psychomotor hyperactivity [Unknown]
  - Product storage error [Unknown]
  - Drug ineffective [Unknown]
  - Knee operation [Unknown]
  - Pain [Unknown]
  - Joint injury [Unknown]

NARRATIVE: CASE EVENT DATE: 2018
